FAERS Safety Report 10972641 (Version 2)
Quarter: 2015Q2

REPORT INFORMATION
  Report Type: Spontaneous
  Country: US (occurrence: US)
  Receive Date: 20150331
  Receipt Date: 20150405
  Transmission Date: 20150821
  Serious: No
  Sender: FDA-Public Use
  Company Number: US-009507513-1503USA011908

PATIENT
  Sex: Female

DRUGS (1)
  1. IMPLANON [Suspect]
     Active Substance: ETONOGESTREL
     Dosage: UNK
     Route: 059

REACTIONS (3)
  - No adverse event [Unknown]
  - Device difficult to use [Not Recovered/Not Resolved]
  - Medical device complication [Recovered/Resolved]
